FAERS Safety Report 22068998 (Version 1)
Quarter: 2023Q1

REPORT INFORMATION
  Report Type: Spontaneous
  Country: US (occurrence: US)
  Receive Date: 20230307
  Receipt Date: 20230307
  Transmission Date: 20230418
  Serious: No
  Sender: FDA-Public Use
  Company Number: US-AMNEAL PHARMACEUTICALS-2022-AMRX-03604

PATIENT
  Sex: Female

DRUGS (3)
  1. RYTARY [Suspect]
     Active Substance: CARBIDOPA\LEVODOPA
     Indication: Parkinson^s disease
     Dosage: 95 AND 245 (FREQUENCY 95 QD AND HS, 245 QD)
     Route: 048
  2. RYTARY [Suspect]
     Active Substance: CARBIDOPA\LEVODOPA
     Dosage: 23.75-95 MG, TAKE 2 CAPSULES BY MOUTH TWICE A DAY
     Route: 048
  3. RYTARY [Suspect]
     Active Substance: CARBIDOPA\LEVODOPA
     Dosage: 23.75-95 MG AND 61.25-245 MG (DIRECTIONS - TAKE 2 CAPSULES (95MG AND 245MG) BY MOUTH TWICE A DAY
     Route: 048
     Dates: start: 20221220

REACTIONS (1)
  - Visual impairment [Unknown]
